FAERS Safety Report 4682169-7 (Version None)
Quarter: 2005Q2

REPORT INFORMATION
  Report Type: 
  Country: None (occurrence: None)
  Receive Date: 20050606
  Receipt Date: 20050524
  Transmission Date: 20051028
  Serious: Yes (Other)
  Sender: FDA-Public Use
  Company Number: US-SOLVAY-00205001777

PATIENT
  Age: 58 Year
  Sex: Female

DRUGS (3)
  1. ESTRATAB [Suspect]
     Indication: MENOPAUSAL SYMPTOMS
     Dosage: DAILY DOSE:  UNKNOWN
     Route: 048
  2. PREMPRO (PREMARIN;CYCRIN 14/14) [Suspect]
     Indication: MENOPAUSAL SYMPTOMS
     Dosage: DAILY DOSE:  UNKNOWN
     Route: 048
  3. CYCRIN [Suspect]
     Indication: OSTEOPOROSIS PROPHYLAXIS
     Dosage: DAILY DOSE:  UNKNOWN
     Route: 048

REACTIONS (4)
  - BREAST CANCER [None]
  - METASTASES TO BONE [None]
  - METASTASES TO HEART [None]
  - METASTASES TO PLEURA [None]
